FAERS Safety Report 6303660-3 (Version None)
Quarter: 2009Q3

REPORT INFORMATION
  Report Type: 
  Country: None (occurrence: None)
  Receive Date: 20090810
  Receipt Date: 20090728
  Transmission Date: 20100115
  Serious: Yes (Other)
  Sender: FDA-Public Use
  Company Number: PHHY2009DE01612

PATIENT
  Sex: Male

DRUGS (1)
  1. TIMOX [Suspect]
     Indication: PARTIAL SEIZURES
     Dosage: 1200 MG/DAY
     Route: 048

REACTIONS (6)
  - ACNE [None]
  - ARTHRALGIA [None]
  - DIZZINESS [None]
  - DYSPHONIA [None]
  - GROWTH RETARDATION [None]
  - OROPHARYNGEAL PAIN [None]
